FAERS Safety Report 22080360 (Version 1)
Quarter: 2023Q1

REPORT INFORMATION
  Report Type: Spontaneous
  Country: CN (occurrence: CN)
  Receive Date: 20230309
  Receipt Date: 20230309
  Transmission Date: 20230418
  Serious: Yes (Other)
  Sender: FDA-Public Use
  Company Number: CN-FERRING-2023FE01084

PATIENT

DRUGS (1)
  1. FIRMAGON [Suspect]
     Active Substance: DEGARELIX ACETATE
     Indication: Prostate cancer
     Dosage: 240 MG, ONCE/SINGLE
     Route: 065
     Dates: start: 20230302, end: 20230302

REACTIONS (5)
  - Tic [Unknown]
  - Frigophobia [Unknown]
  - Inflammation [Unknown]
  - Abdominal pain [Recovered/Resolved]
  - Dry mouth [Unknown]

NARRATIVE: CASE EVENT DATE: 20230302
